FAERS Safety Report 14474353 (Version 1)
Quarter: 2018Q1

REPORT INFORMATION
  Report Type: Spontaneous
  Country: US (occurrence: US)
  Receive Date: 20180131
  Receipt Date: 20180131
  Transmission Date: 20180509
  Serious: Yes (Life-Threatening, Hospitalization)
  Sender: FDA-Public Use
  Company Number: None

PATIENT
  Age: 78 Year
  Sex: Male
  Weight: 130 kg

DRUGS (1)
  1. TORSEMIDE. [Suspect]
     Active Substance: TORSEMIDE
     Indication: CARDIAC FAILURE CONGESTIVE
     Route: 048
     Dates: start: 20171107, end: 20171124

REACTIONS (4)
  - Therapy change [None]
  - Hypotension [None]
  - Dizziness [None]
  - Polyuria [None]

NARRATIVE: CASE EVENT DATE: 20171124
